FAERS Safety Report 13913231 (Version 1)
Quarter: 2017Q3

REPORT INFORMATION
  Report Type: Spontaneous
  Country: US (occurrence: US)
  Receive Date: 20170828
  Receipt Date: 20170828
  Transmission Date: 20171127
  Serious: No
  Sender: FDA-Public Use
  Company Number: US-ROCHE-1127233

PATIENT
  Sex: Male
  Weight: 33.5 kg

DRUGS (4)
  1. NUTROPIN AQ [Suspect]
     Active Substance: SOMATROPIN
     Dosage: 0.35 CC DAILY
     Route: 065
     Dates: start: 19990708
  2. NUTROPIN AQ [Suspect]
     Active Substance: SOMATROPIN
     Indication: ADRENAL INSUFFICIENCY
     Dosage: 0.29 CC
     Route: 058
     Dates: start: 199807
  3. NUTROPIN AQ [Suspect]
     Active Substance: SOMATROPIN
     Dosage: 0.34 CC DAILY
     Route: 065
     Dates: start: 19990301
  4. NUTROPIN AQ [Suspect]
     Active Substance: SOMATROPIN
     Indication: GROWTH HORMONE DEFICIENCY
     Dosage: 0.3 CC DAILY
     Route: 065
     Dates: start: 19981022

REACTIONS (4)
  - Headache [Recovered/Resolved]
  - Anaemia [Unknown]
  - Constipation [Unknown]
  - Musculoskeletal stiffness [Recovered/Resolved]
